FAERS Safety Report 9927828 (Version 3)
Quarter: 2014Q1

REPORT INFORMATION
  Report Type: Report from Study
  Country: US (occurrence: US)
  Receive Date: 20140227
  Receipt Date: 20140318
  Transmission Date: 20141002
  Serious: Yes (Hospitalization)
  Sender: FDA-Public Use
  Company Number: US-ROCHE-1244238

PATIENT
  Age: 62 Year
  Sex: Male
  Weight: 90.9 kg

DRUGS (12)
  1. RITUXIMAB [Suspect]
     Indication: IMMUNOGLOBULIN G4 RELATED SCLEROSING DISEASE
     Route: 042
     Dates: start: 20130627
  2. RITUXIMAB [Suspect]
     Route: 042
     Dates: start: 20130711
  3. AMLODIPINE [Concomitant]
  4. ATENOLOL [Concomitant]
     Route: 065
  5. TRICOR (UNITED STATES) [Concomitant]
  6. CRESTOR [Concomitant]
  7. PRILOSEC [Concomitant]
  8. PLAVIX [Concomitant]
  9. ASA [Concomitant]
  10. METFORMIN [Concomitant]
     Route: 065
  11. LOSARTAN [Concomitant]
     Route: 065
  12. NITROGLYCERIN [Concomitant]

REACTIONS (5)
  - Chest pain [Unknown]
  - Visual impairment [Recovered/Resolved]
  - Nausea [Recovered/Resolved]
  - Pain in jaw [Recovered/Resolved]
  - Chest pain [Recovered/Resolved]
